FAERS Safety Report 8286188-3 (Version None)
Quarter: 2012Q2

REPORT INFORMATION
  Report Type: 
  Country: None (occurrence: None)
  Receive Date: 20120416
  Receipt Date: 20120410
  Transmission Date: 20120825
  Serious: No
  Sender: FDA-Public Use
  Company Number: US-PFIZER INC-2012089821

PATIENT
  Sex: Female
  Weight: 47.619 kg

DRUGS (3)
  1. ERYTHROMYCIN [Concomitant]
     Indication: MYCOBACTERIUM CHELONAE INFECTION
     Dosage: UNK
  2. DOXYCYCLINE HYCLATE [Suspect]
     Dosage: UNK
     Route: 048
  3. DOXYCYCLINE HYCLATE [Suspect]
     Indication: MYCOBACTERIUM CHELONAE INFECTION
     Dosage: 100 MG, 1X/DAY
     Route: 048
     Dates: start: 20120105

REACTIONS (4)
  - NEUTROPHIL COUNT DECREASED [None]
  - MONOCYTE COUNT INCREASED [None]
  - TOOTH DISCOLOURATION [None]
  - LYMPHOCYTE COUNT INCREASED [None]
